FAERS Safety Report 14455298 (Version 2)
Quarter: 2018Q1

REPORT INFORMATION
  Report Type: Spontaneous
  Country: DE (occurrence: DE)
  Receive Date: 20180129
  Receipt Date: 20180305
  Transmission Date: 20180509
  Serious: Yes (Hospitalization)
  Sender: FDA-Public Use
  Company Number: DE-ALLERGAN-1804192US

PATIENT
  Age: 51 Year
  Sex: Female

DRUGS (1)
  1. OZURDEX [Suspect]
     Active Substance: DEXAMETHASONE
     Indication: VENOUS THROMBOSIS
     Dosage: 0.7 MG, SINGLE
     Route: 031
     Dates: start: 20150528, end: 20150528

REACTIONS (8)
  - Eye injury [Not Recovered/Not Resolved]
  - Wrong technique in device usage process [Unknown]
  - Complication of device insertion [Unknown]
  - Device malfunction [Unknown]
  - Retinal injury [Not Recovered/Not Resolved]
  - Vitreous haemorrhage [Not Recovered/Not Resolved]
  - Visual impairment [Not Recovered/Not Resolved]
  - Off label use [Unknown]

NARRATIVE: CASE EVENT DATE: 2014
